FAERS Safety Report 14483801 (Version 1)
Quarter: 2018Q1

REPORT INFORMATION
  Report Type: Spontaneous
  Country: US (occurrence: US)
  Receive Date: 20180205
  Receipt Date: 20180205
  Transmission Date: 20180509
  Serious: No
  Sender: FDA-Public Use
  Company Number: US-SUN PHARMACEUTICAL INDUSTRIES LTD-2017US-132154

PATIENT
  Sex: Female
  Weight: 85.28 kg

DRUGS (4)
  1. LEVOTHYROXINE. [Concomitant]
     Active Substance: LEVOTHYROXINE
     Indication: THYROID DISORDER
     Dosage: 50 ?G, QD
     Route: 048
  2. METOPROLOL. [Suspect]
     Active Substance: METOPROLOL
     Indication: ATRIAL FIBRILLATION
     Dosage: 50 MG, BID
     Route: 048
  3. EMERGEN-C [Suspect]
     Active Substance: VITAMINS
     Indication: IMMUNE ENHANCEMENT THERAPY
     Dosage: UNK
     Route: 048
     Dates: start: 2016, end: 201611
  4. METOPROLOL. [Suspect]
     Active Substance: METOPROLOL
     Indication: TACHYCARDIA

REACTIONS (3)
  - Asthenia [Unknown]
  - Expired product administered [Recovered/Resolved]
  - Drug ineffective [Not Recovered/Not Resolved]

NARRATIVE: CASE EVENT DATE: 2016
